FAERS Safety Report 23365094 (Version 1)
Quarter: 2024Q1

REPORT INFORMATION
  Report Type: Spontaneous
  Country: US (occurrence: US)
  Receive Date: 20240104
  Receipt Date: 20240104
  Transmission Date: 20240409
  Serious: Yes (Hospitalization, Other)
  Sender: FDA-Public Use
  Company Number: US-009507513-2312USA010524

PATIENT
  Age: 78 Year
  Sex: Male

DRUGS (2)
  1. KEYTRUDA [Suspect]
     Active Substance: PEMBROLIZUMAB
     Indication: Malignant melanoma of sites other than skin
     Dosage: 200 MILLIGRAM, FREQUENCY UNKNOWN
     Route: 042
  2. KEYTRUDA [Suspect]
     Active Substance: PEMBROLIZUMAB
     Dosage: 400 MILLIGRAM, FREQUENCY UNKNOWN
     Route: 042
     Dates: end: 2022

REACTIONS (2)
  - Immune-mediated hepatic disorder [Recovered/Resolved]
  - Immune-mediated hepatitis [Recovered/Resolved]
